FAERS Safety Report 19444329 (Version 1)
Quarter: 2021Q2

REPORT INFORMATION
  Report Type: Spontaneous
  Country: US (occurrence: US)
  Receive Date: 20210621
  Receipt Date: 20210621
  Transmission Date: 20210717
  Serious: Yes (Other)
  Sender: FDA-Public Use
  Company Number: US-PFM-2021-04750

PATIENT
  Sex: Female
  Weight: 12 kg

DRUGS (1)
  1. HEMANGEOL [Suspect]
     Active Substance: PROPRANOLOL HYDROCHLORIDE
     Indication: HAEMANGIOMA
     Dosage: 2.6 ML, BID (2/DAY)
     Route: 065

REACTIONS (1)
  - Haematochezia [Not Recovered/Not Resolved]
